FAERS Safety Report 9172400 (Version 3)
Quarter: 2013Q2

REPORT INFORMATION
  Report Type: Spontaneous
  Country: IT (occurrence: IT)
  Receive Date: 20130319
  Receipt Date: 20130416
  Transmission Date: 20140414
  Serious: Yes (Hospitalization)
  Sender: FDA-Public Use
  Company Number: IT-PFIZER INC-2013085794

PATIENT
  Age: 54 Year
  Sex: Male

DRUGS (3)
  1. CISPLATIN [Suspect]
     Indication: TESTIS CANCER
     Dosage: 38 MG, CYCLIC
     Route: 042
     Dates: start: 20130110, end: 20130110
  2. ETOPOSIDE [Suspect]
     Indication: TESTIS CANCER
     Dosage: 190 MG, CYCLIC
     Route: 042
     Dates: start: 20130110, end: 20130110
  3. BLEOPRIM [Suspect]
     Indication: TESTIS CANCER
     Dosage: 30 MG, CYCLIC
     Route: 042
     Dates: start: 20130110, end: 20130110

REACTIONS (3)
  - Stomatitis [Recovered/Resolved]
  - Febrile neutropenia [Recovered/Resolved]
  - Thrombocytopenia [Recovered/Resolved]
